FAERS Safety Report 9853492 (Version 2)
Quarter: 2014Q2

REPORT INFORMATION
  Report Type: Report from Study
  Country: JP (occurrence: JP)
  Receive Date: 20140129
  Receipt Date: 20140421
  Transmission Date: 20141212
  Serious: No
  Sender: FDA-Public Use
  Company Number: JP-GLAXOSMITHKLINE-B0963141A

PATIENT
  Age: 70 Year
  Sex: Male

DRUGS (18)
  1. REQUIP [Suspect]
     Indication: PARKINSON^S DISEASE
     Dosage: 2MG PER DAY
     Route: 048
     Dates: start: 20130503, end: 20130509
  2. REQUIP [Suspect]
     Indication: PARKINSON^S DISEASE
     Dosage: 4MG PER DAY
     Route: 048
     Dates: start: 20130510, end: 20130516
  3. REQUIP [Suspect]
     Indication: PARKINSON^S DISEASE
     Dosage: 6MG PER DAY
     Route: 048
     Dates: start: 20130517, end: 20130523
  4. REQUIP [Suspect]
     Indication: PARKINSON^S DISEASE
     Dosage: 8MG PER DAY
     Route: 048
     Dates: start: 20130524, end: 20130606
  5. REQUIP [Suspect]
     Indication: PARKINSON^S DISEASE
     Dosage: 6MG PER DAY
     Route: 048
     Dates: start: 20130606, end: 20130919
  6. REQUIP [Suspect]
     Indication: PARKINSON^S DISEASE
     Dosage: 2MG PER DAY
     Route: 048
     Dates: start: 20130920, end: 20131127
  7. REQUIP [Suspect]
     Indication: PARKINSON^S DISEASE
     Dosage: 4MG PER DAY
     Route: 048
     Dates: start: 20131129
  8. NEODOPASTON [Concomitant]
     Indication: PARKINSON^S DISEASE
     Route: 048
     Dates: start: 20121018
  9. LIPITOR [Concomitant]
     Route: 048
  10. PARIET [Concomitant]
     Route: 048
  11. MECOBALAMIN [Concomitant]
     Route: 048
  12. SEFTAC [Concomitant]
     Route: 048
  13. ITOPRIDE HYDROCHLORIDE [Concomitant]
     Route: 048
  14. CHINESE MEDICINE [Concomitant]
     Route: 048
  15. PEON [Concomitant]
     Route: 048
  16. AMOBAN [Concomitant]
     Route: 048
  17. BLADDERON [Concomitant]
     Route: 048
  18. DIFLUCAN [Concomitant]
     Route: 065

REACTIONS (1)
  - Somnolence [Recovering/Resolving]
